FAERS Safety Report 5822846-5 (Version None)
Quarter: 2008Q3

REPORT INFORMATION
  Report Type: 
  Country: None (occurrence: None)
  Receive Date: 20080725
  Receipt Date: 20070110
  Transmission Date: 20090109
  Serious: Yes (Hospitalization)
  Sender: FDA-Public Use
  Company Number: US-BRISTOL-MYERS SQUIBB COMPANY-13417894

PATIENT
  Age: 62 Year
  Sex: Male
  Weight: 71 kg

DRUGS (9)
  1. CETUXIMAB [Suspect]
     Indication: NON-SMALL CELL LUNG CANCER
     Route: 042
     Dates: start: 20060530, end: 20060530
  2. DOCETAXEL [Suspect]
     Indication: NON-SMALL CELL LUNG CANCER
     Route: 042
     Dates: start: 20060522, end: 20060522
  3. FLOMAX [Concomitant]
     Route: 065
  4. MUCINEX [Concomitant]
     Route: 065
  5. DURAGESIC-100 [Concomitant]
  6. NEXIUM [Concomitant]
     Route: 048
  7. PHENERGAN HCL [Concomitant]
     Indication: NAUSEA
     Route: 048
  8. POTASSIUM CHLORIDE [Concomitant]
     Route: 065
  9. OXYCODONE HCL [Concomitant]
     Indication: PAIN
     Dosage: 1-2 TBS.
     Route: 048

REACTIONS (1)
  - SUPRAVENTRICULAR TACHYCARDIA [None]
